FAERS Safety Report 6795848-2 (Version None)
Quarter: 2010Q2

REPORT INFORMATION
  Report Type: 
  Country: None (occurrence: None)
  Receive Date: 20100625
  Receipt Date: 20100621
  Transmission Date: 20101027
  Serious: Yes (Hospitalization)
  Sender: FDA-Public Use
  Company Number: A0866322A

PATIENT
  Age: 74 Year
  Sex: Male

DRUGS (5)
  1. ADVAIR DISKUS 100/50 [Suspect]
     Indication: CHRONIC OBSTRUCTIVE PULMONARY DISEASE
     Dosage: 1PUFF TWICE PER DAY
     Route: 055
     Dates: start: 20090615
  2. SPIRIVA [Concomitant]
  3. PROVENTIL [Concomitant]
  4. ALBUTEROL [Concomitant]
  5. LIPITOR [Concomitant]

REACTIONS (4)
  - CANDIDIASIS [None]
  - DYSPHONIA [None]
  - DYSPNOEA [None]
  - NERVOUSNESS [None]
